FAERS Safety Report 12841543 (Version 2)
Quarter: 2018Q2

REPORT INFORMATION
  Report Type: Report from Study
  Country: UA (occurrence: UA)
  Receive Date: 20161012
  Receipt Date: 20180407
  Transmission Date: 20180711
  Serious: Yes (Hospitalization)
  Sender: FDA-Public Use
  Company Number: UA-B.I. PHARMACEUTICALS,INC./RIDGEFIELD-2016-BI-46331BI

PATIENT
  Age: 66 Year
  Sex: Female
  Weight: 80 kg

DRUGS (17)
  1. ATORVASTATIN [Concomitant]
     Active Substance: ATORVASTATIN
     Indication: MYOCARDIAL ISCHAEMIA
     Route: 048
     Dates: start: 20151211, end: 20160510
  2. ROSUVASTATIN. [Concomitant]
     Active Substance: ROSUVASTATIN
     Indication: MYOCARDIAL ISCHAEMIA
     Route: 048
     Dates: start: 20160511
  3. CYANOCOBALAMINE [Concomitant]
     Active Substance: CYANOCOBALAMIN
     Indication: DIABETIC NEUROPATHY
     Route: 065
     Dates: start: 20160510, end: 20160520
  4. PIRACETAM [Concomitant]
     Active Substance: PIRACETAM
     Indication: ENCEPHALOPATHY
     Route: 065
     Dates: start: 20160510, end: 20160520
  5. AMLODIPINE [Concomitant]
     Active Substance: AMLODIPINE BESYLATE
     Route: 048
     Dates: start: 20160520
  6. MONO [Concomitant]
     Indication: ANGIOPATHY
     Route: 065
     Dates: start: 20160510, end: 20160520
  7. PYRIDOXINE [Concomitant]
     Active Substance: PYRIDOXINE
     Indication: DIABETIC NEUROPATHY
     Route: 065
     Dates: start: 20160510, end: 20160520
  8. LISINOPRIL. [Concomitant]
     Active Substance: LISINOPRIL
     Indication: HYPERTENSION
     Route: 048
     Dates: start: 20160510, end: 20160519
  9. ACETYLSALICYLIC ACID [Concomitant]
     Active Substance: ASPIRIN
     Indication: MYOCARDIAL ISCHAEMIA
     Route: 048
     Dates: start: 20151211
  10. ACID THIOCTIC [Concomitant]
     Indication: ANGIOPATHY
     Route: 065
     Dates: start: 20160510, end: 20160520
  11. BISOPROLOL [Concomitant]
     Active Substance: BISOPROLOL
     Indication: HYPERTENSION
     Route: 048
     Dates: start: 20141216, end: 20160510
  12. MAGNESIUM [Concomitant]
     Active Substance: MAGNESIUM
     Indication: HYPERTENSION
     Route: 065
     Dates: start: 20160510, end: 20160520
  13. THIAMINE. [Concomitant]
     Active Substance: THIAMINE
     Indication: DIABETIC NEUROPATHY
     Route: 065
     Dates: start: 20160510, end: 20160520
  14. TRIMETAZIDINE [Concomitant]
     Active Substance: TRIMETAZIDINE
     Indication: MYOCARDIAL ISCHAEMIA
     Route: 065
     Dates: start: 20160510, end: 20160520
  15. AMLODIPINE [Concomitant]
     Active Substance: AMLODIPINE BESYLATE
     Indication: HYPERTENSION
     Route: 048
     Dates: start: 20160510, end: 20160519
  16. PLACEBO [Suspect]
     Active Substance: UNSPECIFIED INGREDIENT
     Indication: TYPE 2 DIABETES MELLITUS
     Route: 048
     Dates: start: 20160422
  17. ENALAPRIL [Concomitant]
     Active Substance: ENALAPRIL
     Indication: MYOCARDIAL ISCHAEMIA
     Route: 048
     Dates: start: 20141216, end: 20160510

REACTIONS (1)
  - Diabetes mellitus [Recovered/Resolved]

NARRATIVE: CASE EVENT DATE: 20160510
